FAERS Safety Report 10907039 (Version 1)
Quarter: 2015Q1

REPORT INFORMATION
  Report Type: Spontaneous
  Country: US (occurrence: US)
  Receive Date: 20150312
  Receipt Date: 20150312
  Transmission Date: 20150721
  Serious: Yes (Hospitalization)
  Sender: FDA-Public Use
  Company Number: US-JNJFOC-20150300259

PATIENT
  Sex: Male

DRUGS (1)
  1. INVEGA SUSTENNA [Suspect]
     Active Substance: PALIPERIDONE PALMITATE
     Indication: PRODUCT USED FOR UNKNOWN INDICATION
     Route: 030

REACTIONS (8)
  - Drug resistance [Unknown]
  - Blister [Unknown]
  - Mental disorder [Unknown]
  - Dry mouth [Unknown]
  - Restlessness [Unknown]
  - Psychotic disorder [Unknown]
  - Agitation [Unknown]
  - Inappropriate schedule of drug administration [Unknown]
